FAERS Safety Report 6260366-7 (Version None)
Quarter: 2009Q3

REPORT INFORMATION
  Report Type: 
  Country: None (occurrence: None)
  Receive Date: 20090708
  Receipt Date: 20090630
  Transmission Date: 20100115
  Serious: Yes (Other)
  Sender: FDA-Public Use
  Company Number: TR-WATSON-2009-05025

PATIENT
  Age: 40 Year
  Sex: Female

DRUGS (6)
  1. FENTANYL CITRATE [Suspect]
     Indication: ANALGESIA
     Dosage: 100 MCG, UNKNOWN
     Route: 065
  2. PAROXETINE HCL [Suspect]
     Indication: DEPRESSION
     Dosage: USAGE FOR 15 YEARS
     Route: 065
  3. THIOPENTAL SODIUM [Concomitant]
     Indication: ANAESTHESIA
     Dosage: 400 MG, UNK
     Route: 042
  4. VECURONIUM BROMIDE [Concomitant]
     Indication: ANAESTHESIA
     Dosage: 8 MG, UNK
     Route: 042
  5. SEVOFLURANE [Concomitant]
     Indication: ANAESTHESIA
     Dosage: 2%
     Route: 042
  6. NITROUS OXIDE [Concomitant]
     Indication: ANAESTHESIA
     Dosage: 50%

REACTIONS (5)
  - DRUG INTERACTION [None]
  - GLASGOW COMA SCALE ABNORMAL [None]
  - NYSTAGMUS [None]
  - PUPILS UNEQUAL [None]
  - SEROTONIN SYNDROME [None]
